FAERS Safety Report 24106034 (Version 3)
Quarter: 2024Q4

REPORT INFORMATION
  Report Type: Spontaneous
  Country: JP (occurrence: JP)
  Receive Date: 20240717
  Receipt Date: 20241114
  Transmission Date: 20250115
  Serious: Yes (Other)
  Sender: ALEXION PHARMACEUTICALS
  Company Number: 2024A016878

PATIENT

DRUGS (8)
  1. IMJUDO [Suspect]
     Active Substance: TREMELIMUMAB\TREMELIMUMAB-ACTL
     Indication: Hepatocellular carcinoma
     Dosage: DOSE UNKNOWN
  2. IMJUDO [Suspect]
     Active Substance: TREMELIMUMAB\TREMELIMUMAB-ACTL
     Dosage: DOSE UNKNOWN
  3. IMJUDO [Suspect]
     Active Substance: TREMELIMUMAB\TREMELIMUMAB-ACTL
     Dosage: DOSE UNKNOWN
  4. IMJUDO [Suspect]
     Active Substance: TREMELIMUMAB\TREMELIMUMAB-ACTL
     Dosage: DOSE UNKNOWN
  5. IMFINZI [Suspect]
     Active Substance: DURVALUMAB
     Indication: Hepatocellular carcinoma
     Dosage: DOSE UNKNOWN
  6. IMFINZI [Suspect]
     Active Substance: DURVALUMAB
     Dosage: DOSE UNKNOWN
  7. IMFINZI [Suspect]
     Active Substance: DURVALUMAB
     Dosage: DOSE UNKNOWN
  8. IMFINZI [Suspect]
     Active Substance: DURVALUMAB
     Dosage: DOSE UNKNOWN

REACTIONS (1)
  - Immune-mediated adverse reaction [Unknown]
